FAERS Safety Report 19354303 (Version 1)
Quarter: 2021Q2

REPORT INFORMATION
  Report Type: Spontaneous
  Country: ES (occurrence: ES)
  Receive Date: 20210602
  Receipt Date: 20210602
  Transmission Date: 20210717
  Serious: Yes (Hospitalization, Other)
  Sender: FDA-Public Use
  Company Number: ES-AUROBINDO-AUR-APL-2021-021787

PATIENT
  Age: 62 Year
  Sex: Male

DRUGS (4)
  1. PRAVASTATIN. [Interacting]
     Active Substance: PRAVASTATIN
     Dosage: 10 MILLIGRAM
     Route: 065
  2. FOSINOPRIL [Concomitant]
     Active Substance: FOSINOPRIL
     Indication: HYPERTENSION
     Dosage: UNK
     Route: 065
  3. EFALIZUMAB [Interacting]
     Active Substance: EFALIZUMAB
     Indication: PRODUCT USED FOR UNKNOWN INDICATION
     Dosage: UNK EVERY WEEK
     Route: 058
  4. PRAVASTATIN. [Suspect]
     Active Substance: PRAVASTATIN
     Indication: LIPID METABOLISM DISORDER
     Dosage: 20 MILLIGRAM
     Route: 065

REACTIONS (3)
  - Drug interaction [Recovered/Resolved]
  - Acute kidney injury [Recovered/Resolved]
  - Rhabdomyolysis [Recovered/Resolved]
